FAERS Safety Report 20232939 (Version 1)
Quarter: 2021Q4

REPORT INFORMATION
  Report Type: Spontaneous
  Country: US (occurrence: None)
  Receive Date: 20211224
  Receipt Date: 20211224
  Transmission Date: 20220304
  Serious: Yes (Hospitalization)
  Sender: FDA-Public Use
  Company Number: None

PATIENT
  Age: 73 Year
  Sex: Female
  Weight: 56.8 kg

DRUGS (1)
  1. CYTARABINE [Suspect]
     Active Substance: CYTARABINE
     Dates: end: 20200107

REACTIONS (6)
  - Contusion [None]
  - Face injury [None]
  - Pancytopenia [None]
  - Dizziness [None]
  - Subarachnoid haemorrhage [None]
  - Facial bones fracture [None]

NARRATIVE: CASE EVENT DATE: 20200115
